FAERS Safety Report 16981182 (Version 2)
Quarter: 2019Q4

REPORT INFORMATION
  Report Type: Spontaneous
  Country: US (occurrence: US)
  Receive Date: 20191031
  Receipt Date: 20191107
  Transmission Date: 20200122
  Serious: Yes (Death, Hospitalization)
  Sender: FDA-Public Use
  Company Number: US-ACTELION-A-NJ2019-197532

PATIENT
  Age: 75 Year
  Sex: Female
  Weight: 63.95 kg

DRUGS (4)
  1. LETAIRIS [Concomitant]
     Active Substance: AMBRISENTAN
  2. ADCIRCA [Concomitant]
     Active Substance: TADALAFIL
  3. VELETRI [Suspect]
     Active Substance: EPOPROSTENOL
     Indication: PULMONARY ARTERIAL HYPERTENSION
     Dosage: 26 NG/KG, PER MIN
     Route: 042
  4. BYSTOLIC [Concomitant]
     Active Substance: NEBIVOLOL HYDROCHLORIDE
     Dosage: UNK
     Dates: start: 20191018

REACTIONS (6)
  - Petit mal epilepsy [Unknown]
  - Diarrhoea [Unknown]
  - Tachycardia [Unknown]
  - Confusional state [Unknown]
  - Disorientation [Unknown]
  - Death [Fatal]

NARRATIVE: CASE EVENT DATE: 20191024
